FAERS Safety Report 18311987 (Version 3)
Quarter: 2020Q4

REPORT INFORMATION
  Report Type: Spontaneous
  Country: US (occurrence: US)
  Receive Date: 20200925
  Receipt Date: 20201104
  Transmission Date: 20210113
  Serious: No
  Sender: FDA-Public Use
  Company Number: US-BAYER-2020-199881

PATIENT
  Age: 47 Year
  Sex: Female

DRUGS (3)
  1. ADCIRCA [Concomitant]
     Active Substance: TADALAFIL
     Dosage: UNK
  2. ADEMPAS [Suspect]
     Active Substance: RIOCIGUAT
     Indication: PRODUCT USED FOR UNKNOWN INDICATION
     Dosage: 0.5 MG
     Route: 065
  3. AMBRISENTAN [Suspect]
     Active Substance: AMBRISENTAN
     Indication: PULMONARY ARTERIAL HYPERTENSION
     Dosage: 5 MG, QD
     Route: 048
     Dates: start: 20170418

REACTIONS (14)
  - Head discomfort [Not Recovered/Not Resolved]
  - Malaise [Unknown]
  - Heart rate increased [None]
  - Headache [Not Recovered/Not Resolved]
  - Dizziness exertional [None]
  - Dyspnoea [Not Recovered/Not Resolved]
  - Drug intolerance [None]
  - Dizziness [Not Recovered/Not Resolved]
  - Asthenia [Not Recovered/Not Resolved]
  - Hypertension [None]
  - Dyspnoea exertional [Not Recovered/Not Resolved]
  - Discomfort [Not Recovered/Not Resolved]
  - Contraindicated product administered [None]
  - Fatigue [Not Recovered/Not Resolved]
